FAERS Safety Report 5757397-X (Version None)
Quarter: 2008Q2

REPORT INFORMATION
  Report Type: 
  Country: None (occurrence: None)
  Receive Date: 20080603
  Receipt Date: 20080529
  Transmission Date: 20081010
  Serious: Yes (Death, Hospitalization)
  Sender: FDA-Public Use
  Company Number: KP-AVENTIS-200711446GDDC

PATIENT
  Age: 59 Year
  Sex: Female

DRUGS (7)
  1. DOCETAXEL [Suspect]
     Indication: NON-SMALL CELL LUNG CANCER
     Route: 042
     Dates: start: 20070129
  2. OXYCODONE HCL [Concomitant]
     Dosage: DOSE: UNK
     Dates: start: 20061123, end: 20070322
  3. MEGESTROL ACETATE [Concomitant]
     Dosage: DOSE: UNK
     Dates: start: 20061124, end: 20070322
  4. LACTULOSE [Concomitant]
     Dosage: DOSE: UNK
     Dates: start: 20061125, end: 20070212
  5. CHLORPHENIRAMINE MALEATE [Concomitant]
     Dosage: DOSE: UNK
     Dates: start: 20061126, end: 20070214
  6. DESONIDE [Concomitant]
     Dosage: DOSE: UNK
     Dates: start: 20061127
  7. DIHYDROCODEINE BITARTRATE INJ [Concomitant]
     Dates: start: 20061125, end: 20070207

REACTIONS (3)
  - ABDOMINAL PAIN [None]
  - NEUTROPENIA [None]
  - NEUTROPENIC SEPSIS [None]
